FAERS Safety Report 24085341 (Version 1)
Quarter: 2024Q3

REPORT INFORMATION
  Report Type: Spontaneous
  Country: GB (occurrence: GB)
  Receive Date: 20240712
  Receipt Date: 20240712
  Transmission Date: 20241016
  Serious: Yes (Other)
  Sender: PFIZER
  Company Number: GB-MHRA-TPP13563131C10015503YC1720516046805

PATIENT
  Age: 86 Year
  Sex: Female
  Weight: 57 kg

DRUGS (7)
  1. DOXYCYCLINE [Suspect]
     Active Substance: DOXYCYCLINE\DOXYCYCLINE HYCLATE
     Dosage: UNK (BATCH/LOT #: UNK)
     Dates: start: 20240709
  2. DOXYCYCLINE [Suspect]
     Active Substance: DOXYCYCLINE\DOXYCYCLINE HYCLATE
     Indication: Ill-defined disorder
     Dosage: UNK (BATCH/LOT NUMBER: UNK)
  3. AMOXICILLIN [Concomitant]
     Active Substance: AMOXICILLIN
     Indication: Ill-defined disorder
     Dosage: 1 DF, 3X/DAY (TAKE ONE CAPSULE THREE TIMES A DAY FOR 5 DAYS, BATCH/LOT #: UNK)
     Dates: start: 20240528, end: 20240602
  4. DOXYCYCLINE [Concomitant]
     Active Substance: DOXYCYCLINE\DOXYCYCLINE HYCLATE
     Indication: Ill-defined disorder
     Dosage: TWO NOW THEN ONE DAILY (BATCH/LOT NUMBER: UNK)
     Dates: start: 20240703
  5. FEXOFENADINE [Concomitant]
     Active Substance: FEXOFENADINE HYDROCHLORIDE
     Indication: Ill-defined disorder
     Dosage: 1 DF, DAILY (TAKE ONE DAILY, BATCH/LOT #: UNK)
     Dates: start: 20240709
  6. PROCYCLIDINE [Concomitant]
     Active Substance: PROCYCLIDINE
     Indication: Ill-defined disorder
     Dosage: ONE DAILY (BATCH/LOT #: UNK)
     Dates: start: 20231031
  7. POLYETHYLENE GLYCOLS [Concomitant]
     Active Substance: POLYETHYLENE GLYCOLS
     Indication: Ill-defined disorder
     Dosage: TAKE THE CONTENTS OF ONE TO THREE SACHETS DAILY. (BATCH/LOT #: UNK)
     Dates: start: 20240624

REACTIONS (2)
  - Tinnitus [Unknown]
  - Pruritus [Unknown]
